FAERS Safety Report 7578923-4 (Version None)
Quarter: 2011Q2

REPORT INFORMATION
  Report Type: 
  Country: None (occurrence: None)
  Receive Date: 20110628
  Receipt Date: 20100128
  Transmission Date: 20111010
  Serious: Yes (Other)
  Sender: FDA-Public Use
  Company Number: PHBS2010DE00919

PATIENT
  Sex: Male
  Weight: 105 kg

DRUGS (2)
  1. SANDOSTATIN LAR [Suspect]
     Indication: ACROMEGALY
     Dosage: 20 MG, QMO
     Route: 030
     Dates: start: 20100128
  2. CORTISONE ACETATE [Concomitant]

REACTIONS (3)
  - WEIGHT DECREASED [None]
  - COR PULMONALE [None]
  - DIARRHOEA [None]
